FAERS Safety Report 14312218 (Version 1)
Quarter: 2017Q4

REPORT INFORMATION
  Report Type: Spontaneous
  Country: US (occurrence: US)
  Receive Date: 20171221
  Receipt Date: 20171221
  Transmission Date: 20180321
  Serious: Yes (Other)
  Sender: FDA-Public Use
  Company Number: US-JAZZ-2017-US-015193

PATIENT
  Age: 3 Year
  Sex: Male

DRUGS (1)
  1. ERWINAZE [Suspect]
     Active Substance: ASPARAGINASE ERWINIA CHRYSANTHEMI
     Indication: B PRECURSOR TYPE ACUTE LEUKAEMIA
     Dosage: 20000 U, UNK
     Route: 042
     Dates: start: 20171110, end: 20171110

REACTIONS (1)
  - Infusion related reaction [Recovered/Resolved]

NARRATIVE: CASE EVENT DATE: 20171110
